FAERS Safety Report 6657262-X (Version None)
Quarter: 2010Q1

REPORT INFORMATION
  Report Type: 
  Country: None (occurrence: None)
  Receive Date: 20100325
  Receipt Date: 20100318
  Transmission Date: 20100710
  Serious: Yes (Hospitalization, Disabling)
  Sender: FDA-Public Use
  Company Number: 2010SP006325

PATIENT
  Age: 29 Year
  Sex: Female
  Weight: 53.978 kg

DRUGS (5)
  1. NUVARING [Suspect]
     Indication: CONTRACEPTION
     Dosage: VAG
     Route: 067
     Dates: start: 20070306, end: 20070704
  2. VALTREX (CON.) [Concomitant]
  3. TRAMADOL/APAP (CON.) [Concomitant]
  4. VENTOLIN (CON.) [Concomitant]
  5. BUTALBITAL (CON.) [Concomitant]

REACTIONS (22)
  - AGGRESSION [None]
  - AGITATION [None]
  - ANTITHROMBIN III DECREASED [None]
  - ASTHMA [None]
  - CEREBRAL HAEMORRHAGE [None]
  - CEREBRAL VENOUS THROMBOSIS [None]
  - COAGULATION FACTOR VIII LEVEL INCREASED [None]
  - ENCEPHALOMALACIA [None]
  - GRAND MAL CONVULSION [None]
  - GRANULOMA [None]
  - HEADACHE [None]
  - HYPOAESTHESIA [None]
  - INJURY [None]
  - LOSS OF CONSCIOUSNESS [None]
  - MIGRAINE [None]
  - NAUSEA [None]
  - PAIN [None]
  - PANIC ATTACK [None]
  - PNEUMONIA [None]
  - PROTEIN C DECREASED [None]
  - VOCAL CORD PARALYSIS [None]
  - VOMITING [None]
